FAERS Safety Report 7313489-5 (Version None)
Quarter: 2011Q1

REPORT INFORMATION
  Report Type: 
  Country: None (occurrence: None)
  Receive Date: 20110225
  Receipt Date: 20110216
  Transmission Date: 20110831
  Serious: No
  Sender: FDA-Public Use
  Company Number: US-PFIZER INC-2011007213

PATIENT
  Sex: Female
  Weight: 63.5 kg

DRUGS (9)
  1. LEVOTHYROXINE [Concomitant]
     Dosage: 0.05 MG, UNK
  2. DILTIAZEM [Concomitant]
     Dosage: 240 MG, DAILY
  3. RAMIPRIL [Concomitant]
     Dosage: 2.5 MG, UNK
  4. PREMARIN [Suspect]
     Indication: VULVOVAGINAL DRYNESS
     Dosage: UNK
     Route: 067
     Dates: start: 20101201, end: 20110107
  5. ZOCOR [Concomitant]
     Dosage: UNK
  6. ACEBUTOLOL [Concomitant]
     Dosage: 200 MG, UNK
  7. SIMVASTATIN [Concomitant]
     Dosage: 5 MG, UNK
  8. OMEPRAZOLE [Concomitant]
     Dosage: 20 MG, UNK
  9. PREMARIN [Suspect]
     Dosage: 3 MG, 1X/DAY
     Route: 048

REACTIONS (1)
  - HEADACHE [None]
